FAERS Safety Report 12816499 (Version 1)
Quarter: 2016Q4

REPORT INFORMATION
  Report Type: Spontaneous
  Country: US (occurrence: US)
  Receive Date: 20161005
  Receipt Date: 20161005
  Transmission Date: 20170207
  Serious: No
  Sender: FDA-Public Use
  Company Number: US-AMGEN-USASP2015103905

PATIENT
  Age: 80 Year
  Sex: Female

DRUGS (1)
  1. PROLIA [Suspect]
     Active Substance: DENOSUMAB
     Indication: OSTEOPOROSIS
     Dosage: UNK
     Route: 065

REACTIONS (13)
  - Hypoaesthesia [Not Recovered/Not Resolved]
  - Cough [Unknown]
  - Skin exfoliation [Unknown]
  - Dyspnoea [Unknown]
  - Pruritus [Unknown]
  - Blister [Unknown]
  - Chronic obstructive pulmonary disease [Unknown]
  - Back pain [Unknown]
  - Erythema [Unknown]
  - Malaise [Unknown]
  - Rash [Unknown]
  - Muscle spasms [Unknown]
  - Asthma [Unknown]

NARRATIVE: CASE EVENT DATE: 2015
